FAERS Safety Report 10788543 (Version 2)
Quarter: 2015Q4

REPORT INFORMATION
  Report Type: Spontaneous
  Country: US (occurrence: US)
  Receive Date: 20150212
  Receipt Date: 20151111
  Transmission Date: 20160304
  Serious: Yes (Hospitalization)
  Sender: FDA-Public Use
  Company Number: US-UCBSA-2015002219

PATIENT
  Age: 84 Year
  Sex: Female

DRUGS (2)
  1. VIMPAT [Suspect]
     Active Substance: LACOSAMIDE
     Indication: SEIZURE
     Dosage: 150 MG, 2X/2 DAYS
  2. TOPAMAX [Concomitant]
     Active Substance: TOPIRAMATE
     Indication: SLEEP DISORDER
     Dosage: UNK

REACTIONS (3)
  - Limb discomfort [Recovered/Resolved]
  - Tremor [Recovering/Resolving]
  - Gait disturbance [Recovering/Resolving]

NARRATIVE: CASE EVENT DATE: 201412
